FAERS Safety Report 21353143 (Version 1)
Quarter: 2022Q3

REPORT INFORMATION
  Report Type: Spontaneous
  Country: US (occurrence: US)
  Receive Date: 20220920
  Receipt Date: 20220920
  Transmission Date: 20221026
  Serious: No
  Sender: FDA-Public Use
  Company Number: US-SUN PHARMACEUTICAL INDUSTRIES LTD-2022R1-345419

PATIENT
  Sex: Female

DRUGS (1)
  1. WINLEVI [Suspect]
     Active Substance: CLASCOTERONE
     Indication: Acne
     Dosage: UNK
     Route: 061
     Dates: start: 20220711, end: 20220718

REACTIONS (3)
  - Product use complaint [Unknown]
  - Product physical consistency issue [Unknown]
  - Acne cystic [Unknown]

NARRATIVE: CASE EVENT DATE: 20220712
